FAERS Safety Report 6528391-6 (Version None)
Quarter: 2010Q1

REPORT INFORMATION
  Report Type: 
  Country: None (occurrence: None)
  Receive Date: 20100106
  Receipt Date: 20090814
  Transmission Date: 20100710
  Serious: Yes (Hospitalization)
  Sender: FDA-Public Use
  Company Number: A0807945A

PATIENT
  Sex: Female
  Weight: 67 kg

DRUGS (4)
  1. SERETIDE [Suspect]
     Indication: ASTHMA
     Dosage: 1PUFF TWICE PER DAY
     Route: 055
     Dates: start: 20040101
  2. LISINOPRIL [Concomitant]
  3. BAMIFIX [Concomitant]
     Dosage: 600MG TWICE PER DAY
     Route: 048
  4. PRELONE [Concomitant]
     Dates: start: 20090628, end: 20090721

REACTIONS (4)
  - DYSPHONIA [None]
  - DYSPNOEA [None]
  - PRODUCT QUALITY ISSUE [None]
  - RALES [None]
